FAERS Safety Report 8811808 (Version 1)
Quarter: 2012Q4

REPORT INFORMATION
  Report Type: 
  Country: US (occurrence: US)
  Receive Date: 20120927
  Receipt Date: 20120927
  Transmission Date: 20130627
  Serious: Yes (Hospitalization, Other)
  Sender: FDA-Public Use
  Company Number: US-GLAXOSMITHKLINE-A0872002A

PATIENT
  Age: 71 Year
  Sex: Male
  Weight: 95 kg

DRUGS (2)
  1. ALKERAN [Suspect]
     Indication: MULTIPLE MYELOMA
     Dosage: 18MG per day
     Route: 048
     Dates: start: 20100314
  2. VELCADE [Suspect]
     Indication: MULTIPLE MYELOMA
     Dates: start: 20100314, end: 20100506

REACTIONS (5)
  - Hypertrophic cardiomyopathy [Recovered/Resolved]
  - Anaemia [Unknown]
  - Gastrointestinal haemorrhage [Unknown]
  - Dizziness [Unknown]
  - Hypotension [Unknown]
